FAERS Safety Report 16903933 (Version 2)
Quarter: 2019Q4

REPORT INFORMATION
  Report Type: Spontaneous
  Country: JP (occurrence: JP)
  Receive Date: 20191010
  Receipt Date: 20191028
  Transmission Date: 20200122
  Serious: Yes (Other)
  Sender: FDA-Public Use
  Company Number: JP-PFIZER INC-2019433307

PATIENT
  Age: 69 Year
  Sex: Male

DRUGS (1)
  1. AMIODARONE HCL [Suspect]
     Active Substance: AMIODARONE HYDROCHLORIDE
     Indication: ATRIAL FIBRILLATION
     Dosage: UNK
     Route: 048

REACTIONS (9)
  - Lung opacity [Recovered/Resolved]
  - Liver function test increased [Unknown]
  - Dyspnoea exertional [Recovering/Resolving]
  - Pulmonary toxicity [Unknown]
  - Interstitial lung disease [Unknown]
  - Hypothyroidism [Unknown]
  - Liver disorder [Unknown]
  - Hypoxia [Unknown]
  - Lung infiltration [Recovered/Resolved]
